FAERS Safety Report 7264894-7 (Version None)
Quarter: 2011Q1

REPORT INFORMATION
  Report Type: 
  Country: None (occurrence: None)
  Receive Date: 20110131
  Receipt Date: 20101124
  Transmission Date: 20110831
  Serious: Yes (Hospitalization)
  Sender: FDA-Public Use
  Company Number: US-BAYER-201034367NA

PATIENT
  Sex: Female
  Weight: 97.506 kg

DRUGS (7)
  1. YAZ [Suspect]
     Indication: PREMENSTRUAL SYNDROME
     Route: 048
     Dates: start: 20100501, end: 20100601
  2. ADVIL [Concomitant]
     Indication: HEADACHE
     Dosage: UNK
     Dates: start: 20030101, end: 20100601
  3. LEVOTHYROXINE SODIUM [Concomitant]
     Indication: HYPOTHYROIDISM
     Dosage: UNK
     Dates: start: 20070101
  4. YAZ [Suspect]
  5. ZOLOFT [Concomitant]
     Indication: ANXIETY
     Dosage: UNK
     Dates: start: 20030101, end: 20100701
  6. PRISTIQ [Concomitant]
     Indication: MOOD SWINGS
  7. UNCODEABLE ^UNCLASSIFIABLE^ [Concomitant]
     Dosage: UNK
     Dates: start: 20080101

REACTIONS (1)
  - PULMONARY EMBOLISM [None]
